FAERS Safety Report 10267215 (Version 1)
Quarter: 2014Q2

REPORT INFORMATION
  Report Type: Spontaneous
  Country: US (occurrence: None)
  Receive Date: 20140626
  Receipt Date: 20140626
  Transmission Date: 20141212
  Serious: Yes (Hospitalization)
  Sender: FDA-Public Use
  Company Number: None

PATIENT
  Age: 53 Year
  Sex: Female
  Weight: 116 kg

DRUGS (10)
  1. DISULFIRAM [Suspect]
     Indication: ALCOHOLISM
     Route: 048
     Dates: start: 20140609, end: 20140624
  2. ACETAMINOPHEN [Concomitant]
  3. ALBUTEROL HFA [Concomitant]
  4. EXCEDRIN ES [Concomitant]
  5. CITALOPRAM [Concomitant]
  6. ENALAPRIL [Concomitant]
  7. IBUPROFEN [Concomitant]
  8. LEVOTHYROXINE [Concomitant]
  9. LORATADINE [Concomitant]
  10. METOPROLOL [Concomitant]

REACTIONS (2)
  - Asthenia [None]
  - Hepatic encephalopathy [None]
